FAERS Safety Report 5391233-9 (Version None)
Quarter: 2007Q3

REPORT INFORMATION
  Report Type: 
  Country: None (occurrence: None)
  Receive Date: 20070719
  Receipt Date: 20070713
  Transmission Date: 20080115
  Serious: Yes (Hospitalization)
  Sender: FDA-Public Use
  Company Number: FR-AVENTIS-200712283FR

PATIENT
  Age: 92 Year
  Sex: Female

DRUGS (6)
  1. LASIX [Suspect]
     Route: 048
     Dates: end: 20070531
  2. LASIX [Suspect]
     Route: 048
     Dates: start: 20070601
  3. INIPOMP                            /01263201/ [Suspect]
     Route: 048
     Dates: end: 20070602
  4. TAREG [Concomitant]
     Route: 048
  5. CORTANCYL [Concomitant]
     Route: 048
  6. SINTROM [Concomitant]
     Route: 048

REACTIONS (2)
  - CONVULSION [None]
  - HYPONATRAEMIA [None]
